FAERS Safety Report 4518331-3 (Version None)
Quarter: 2004Q4

REPORT INFORMATION
  Report Type: 
  Country: None (occurrence: None)
  Receive Date: 20041203
  Receipt Date: 20041117
  Transmission Date: 20050328
  Serious: Yes (Death, Hospitalization)
  Sender: FDA-Public Use
  Company Number: MY-ABBOTT-04P-101-0281068-00

PATIENT
  Sex: Male
  Weight: 56 kg

DRUGS (8)
  1. GENGRAF [Suspect]
     Indication: DRUG USE FOR UNKNOWN INDICATION
  2. MMF [Concomitant]
     Indication: TRANSPLANT
     Route: 048
     Dates: start: 20031120
  3. MMF [Concomitant]
     Route: 048
     Dates: start: 20031120, end: 20031217
  4. ITRACONAZOLE [Concomitant]
     Indication: TRANSPLANT
     Route: 048
     Dates: start: 20031114, end: 20031216
  5. PREDNISOLONE [Concomitant]
     Indication: TRANSPLANT
     Route: 048
     Dates: start: 20031024
  6. PREDNISOLONE [Concomitant]
     Route: 048
     Dates: start: 20031120, end: 20031217
  7. PANTOPRAZOLE [Concomitant]
     Indication: PEPTIC ULCER
     Route: 048
     Dates: start: 20031024
  8. AMPICILLIN [Concomitant]
     Indication: INFECTION
     Route: 042
     Dates: start: 20031117, end: 20031217

REACTIONS (6)
  - CARDIAC ARREST [None]
  - DIARRHOEA [None]
  - HYPERKALAEMIA [None]
  - IMMUNOSUPPRESSANT DRUG LEVEL DECREASED [None]
  - OESOPHAGEAL CANDIDIASIS [None]
  - TRANSPLANT REJECTION [None]
